FAERS Safety Report 25554575 (Version 1)
Quarter: 2025Q3

REPORT INFORMATION
  Report Type: Report from Study
  Country: US (occurrence: US)
  Receive Date: 20250715
  Receipt Date: 20250715
  Transmission Date: 20251020
  Serious: Yes (Hospitalization)
  Sender: ARGENX BVBA
  Company Number: US-ARGENX-2025-ARGX-US008899

PATIENT

DRUGS (1)
  1. EFGARTIGIMOD ALFA-FCAB [Suspect]
     Active Substance: EFGARTIGIMOD ALFA-FCAB
     Indication: Myasthenia gravis
     Route: 042
     Dates: end: 20250706

REACTIONS (8)
  - Chest discomfort [Recovering/Resolving]
  - Limb discomfort [Recovering/Resolving]
  - Arthralgia [Recovering/Resolving]
  - Dyspnoea [Recovering/Resolving]
  - Chest pain [Recovering/Resolving]
  - Back pain [Recovering/Resolving]
  - Dysarthria [Recovered/Resolved]
  - Paraesthesia [Recovered/Resolved]

NARRATIVE: CASE EVENT DATE: 20250706
